FAERS Safety Report 9087373 (Version 1)
Quarter: 2013Q1

REPORT INFORMATION
  Report Type: Report from Study
  Country: US (occurrence: US)
  Receive Date: 20130130
  Receipt Date: 20130130
  Transmission Date: 20140127
  Serious: No
  Sender: FDA-Public Use
  Company Number: US-ABBOTT-12P-163-0988943-00

PATIENT
  Age: 60 Year
  Sex: Female
  Weight: 79.45 kg

DRUGS (8)
  1. HUMIRA [Suspect]
     Indication: RHEUMATOID ARTHRITIS
     Dates: start: 20120911
  2. METHOTREXATE  (NON-ABBOTT) [Concomitant]
     Indication: RHEUMATOID ARTHRITIS
  3. PREDNISONE (NON-ABBOTT) [Concomitant]
     Indication: RHEUMATOID ARTHRITIS
     Dates: start: 2011
  4. DIOVAN HCT  (NON-ABBOTT) [Concomitant]
     Indication: HYPERTENSION
  5. SIMVASTATIN  (NON-ABBOTT) [Concomitant]
     Indication: HYPERLIPIDAEMIA
  6. FOLIC ACID (NON-ABBOTT) [Concomitant]
     Indication: PRODUCT USED FOR UNKNOWN INDICATION
  7. ZOLOFT [Concomitant]
     Indication: DEPRESSION
  8. COQ 10 (NON-ABBOTT) [Concomitant]
     Indication: VITAMIN SUPPLEMENTATION

REACTIONS (2)
  - Incorrect dose administered [Not Recovered/Not Resolved]
  - Injection site pain [Not Recovered/Not Resolved]
